FAERS Safety Report 15703306 (Version 1)
Quarter: 2018Q4

REPORT INFORMATION
  Report Type: Other
  Country: ES (occurrence: ES)
  Receive Date: 20181210
  Receipt Date: 20181210
  Transmission Date: 20190205
  Serious: Yes (Hospitalization, Other)
  Sender: FDA-Public Use
  Company Number: ES-APOTEX-2018AP026153

PATIENT
  Age: 39 Year
  Sex: Male

DRUGS (5)
  1. ALPRAZOLAM. [Suspect]
     Active Substance: ALPRAZOLAM
     Indication: PRODUCT USED FOR UNKNOWN INDICATION
     Dosage: UNK
     Route: 048
     Dates: start: 2007, end: 20071128
  2. AMOXICILLINE                       /00249601/ [Suspect]
     Active Substance: AMOXICILLIN
     Indication: RESPIRATORY TRACT INFECTION
     Dosage: UNK
     Route: 048
     Dates: start: 20071210
  3. ACETILCISTEINA RATIOPHARM [Suspect]
     Active Substance: ACETYLCYSTEINE
     Indication: RESPIRATORY TRACT INFECTION
     Dosage: UNK
     Route: 048
     Dates: start: 20071210
  4. ZAMENE [Suspect]
     Active Substance: DEFLAZACORT
     Indication: FACIAL PARALYSIS
     Dosage: DESCONOCIDA
     Route: 048
     Dates: start: 20071128, end: 20071228
  5. ZAMENE [Suspect]
     Active Substance: DEFLAZACORT
     Indication: FACIAL PARALYSIS

REACTIONS (1)
  - Toxic epidermal necrolysis [Recovered/Resolved]

NARRATIVE: CASE EVENT DATE: 20071228
